FAERS Safety Report 4579725-3 (Version None)
Quarter: 2005Q1

REPORT INFORMATION
  Report Type: 
  Country: None (occurrence: None)
  Receive Date: 20050210
  Receipt Date: 20050210
  Transmission Date: 20050727
  Serious: Yes (Other)
  Sender: FDA-Public Use
  Company Number: None

PATIENT
  Weight: 70.7611 kg

DRUGS (1)
  1. HALOPERIDOL [Suspect]
     Dosage: 100MG  Q4W  INTRAMUSCULAR
     Route: 030

REACTIONS (1)
  - EXTRAPYRAMIDAL DISORDER [None]
